FAERS Safety Report 13703399 (Version 3)
Quarter: 2018Q4

REPORT INFORMATION
  Report Type: Spontaneous
  Country: US (occurrence: US)
  Receive Date: 20170629
  Receipt Date: 20181016
  Transmission Date: 20190204
  Serious: Yes (Other)
  Sender: FDA-Public Use
  Company Number: US-ALLERGAN-1716242US

PATIENT
  Age: 25 Year
  Sex: Male

DRUGS (3)
  1. VIIBRYD [Suspect]
     Active Substance: VILAZODONE HYDROCHLORIDE
     Indication: MAJOR DEPRESSION
     Dosage: 10 MG, QHS
     Route: 048
     Dates: start: 20170417, end: 20170417
  2. VIIBRYD [Suspect]
     Active Substance: VILAZODONE HYDROCHLORIDE
     Indication: ANXIETY
  3. ALPRAZOLAM. [Concomitant]
     Active Substance: ALPRAZOLAM
     Indication: PRODUCT USED FOR UNKNOWN INDICATION
     Dosage: 1 MG, PRN
     Route: 048

REACTIONS (15)
  - Loss of consciousness [Unknown]
  - Cold sweat [Unknown]
  - Hypotension [Recovered/Resolved]
  - Depression [Unknown]
  - Anxiety [Unknown]
  - Seizure [Unknown]
  - Tooth fracture [Not Recovered/Not Resolved]
  - Nausea [Recovered/Resolved]
  - Vomiting [Unknown]
  - Flushing [Recovered/Resolved]
  - Off label use [Unknown]
  - Head injury [Recovered/Resolved]
  - Impaired work ability [Unknown]
  - Concussion [Recovered/Resolved]
  - Fall [Recovered/Resolved]

NARRATIVE: CASE EVENT DATE: 2017
